FAERS Safety Report 18490324 (Version 2)
Quarter: 2020Q4

REPORT INFORMATION
  Report Type: Spontaneous
  Country: CA (occurrence: CA)
  Receive Date: 20201111
  Receipt Date: 20201123
  Transmission Date: 20210114
  Serious: Yes (Death, Hospitalization, Other)
  Sender: FDA-Public Use
  Company Number: CA-PFIZER INC-2020407054

PATIENT
  Age: 76 Year
  Sex: Male

DRUGS (1)
  1. DAURISMO [Suspect]
     Active Substance: GLASDEGIB
     Indication: ACUTE MYELOID LEUKAEMIA
     Dosage: 100 MG, DAILY
     Dates: start: 20201022

REACTIONS (3)
  - Neoplasm progression [Fatal]
  - Pneumonia [Fatal]
  - Fall [Unknown]

NARRATIVE: CASE EVENT DATE: 202010
